FAERS Safety Report 21906205 (Version 3)
Quarter: 2023Q2

REPORT INFORMATION
  Report Type: Spontaneous
  Country: ES (occurrence: ES)
  Receive Date: 20230125
  Receipt Date: 20230428
  Transmission Date: 20230722
  Serious: Yes (Hospitalization)
  Sender: FDA-Public Use
  Company Number: ES-JNJFOC-20230144147

PATIENT
  Age: 73 Year
  Sex: Female

DRUGS (4)
  1. STELARA [Suspect]
     Active Substance: USTEKINUMAB
     Indication: Crohn^s disease
     Route: 058
     Dates: start: 202212
  2. RUXOLITINIB [Concomitant]
     Active Substance: RUXOLITINIB
  3. BUDESONIDE [Concomitant]
     Active Substance: BUDESONIDE
  4. ERYTHROPOIETIN [Concomitant]
     Active Substance: ERYTHROPOIETIN

REACTIONS (3)
  - Pulmonary embolism [Recovering/Resolving]
  - Deep vein thrombosis [Unknown]
  - Anastomotic stenosis [Unknown]

NARRATIVE: CASE EVENT DATE: 20230101
